FAERS Safety Report 4761195-3 (Version None)
Quarter: 2005Q3

REPORT INFORMATION
  Report Type: 
  Country: None (occurrence: None)
  Receive Date: 20050902
  Receipt Date: 20050902
  Transmission Date: 20060218
  Serious: Yes (Disabling)
  Sender: FDA-Public Use
  Company Number: None

PATIENT
  Age: 57 Year
  Sex: Male
  Weight: 97.5234 kg

DRUGS (2)
  1. VIAGRA [Suspect]
     Dosage: 50 MG (SAMPLE)
     Dates: start: 19991215
  2. VIAGRA [Suspect]
     Dosage: 50 MG (SAMPLE)
     Dates: start: 20000101

REACTIONS (1)
  - OPTIC NERVE INFARCTION [None]
